FAERS Safety Report 5534801-3 (Version None)
Quarter: 2007Q4

REPORT INFORMATION
  Report Type: 
  Country: None (occurrence: None)
  Receive Date: 20071130
  Receipt Date: 20071116
  Transmission Date: 20080405
  Serious: Yes (Hospitalization, Other)
  Sender: FDA-Public Use
  Company Number: A-CH2007-18588

PATIENT
  Age: 66 Year
  Sex: Male

DRUGS (14)
  1. TRACLEER [Suspect]
     Indication: PULMONARY HYPERTENSION
     Dosage: ORAL
     Route: 048
     Dates: start: 20071031, end: 20071104
  2. VENTAVIS [Concomitant]
  3. LEXOMIL (BROMAZEPAM) [Concomitant]
  4. SILDENAFIL CITRATE [Concomitant]
  5. GELOX (ALUMINIUM SILICATE, MAGNESIUM HYDROXIDE, ALUMINIUM HYDROXIDE) [Concomitant]
  6. ALDACTONE [Concomitant]
  7. LASIX [Concomitant]
  8. DURAGESIC-100 [Concomitant]
  9. AUGMENTIN '125' [Concomitant]
  10. LANSOPRAZOLE [Concomitant]
  11. DIGOXIN [Concomitant]
  12. ALLOPURINOL [Concomitant]
  13. DOBUTREX [Concomitant]
  14. SPASFON (TRIMETHYLPHLOROGLUCINOL, PHLOROGLUCINOL) [Concomitant]

REACTIONS (4)
  - ANAEMIA [None]
  - HYPERSENSITIVITY [None]
  - PAROTID ABSCESS [None]
  - THROMBOCYTOPENIA [None]
